FAERS Safety Report 16453986 (Version 2)
Quarter: 2019Q3

REPORT INFORMATION
  Report Type: Report from Study
  Country: HU (occurrence: HU)
  Receive Date: 20190619
  Receipt Date: 20190712
  Transmission Date: 20191004
  Serious: Yes (Other)
  Sender: FDA-Public Use
  Company Number: PHHY2019HU137454

PATIENT
  Age: 72 Year
  Sex: Male
  Weight: 72 kg

DRUGS (6)
  1. LU(177)-DOTATOC [Concomitant]
     Active Substance: EDOTREOTIDE\LUTETIUM LU-177
     Indication: NEUROENDOCRINE TUMOUR
     Dosage: UNK
     Route: 065
     Dates: start: 20140807
  2. LU(177)-DOTATOC [Concomitant]
     Active Substance: EDOTREOTIDE\LUTETIUM LU-177
     Dosage: UNK
     Route: 065
     Dates: start: 201412
  3. LU(177)-DOTATOC [Concomitant]
     Active Substance: EDOTREOTIDE\LUTETIUM LU-177
     Dosage: UNK
     Route: 065
     Dates: start: 201410
  4. SANDOSTATIN LAR DEPOT [Suspect]
     Active Substance: OCTREOTIDE ACETATE
     Indication: NEUROENDOCRINE TUMOUR
     Dosage: UNK
     Route: 065
  5. LU(177)-DOTATOC [Concomitant]
     Active Substance: EDOTREOTIDE\LUTETIUM LU-177
     Dosage: UNK
     Route: 065
     Dates: start: 20160222, end: 20160224
  6. LU(177)-DOTATOC [Concomitant]
     Active Substance: EDOTREOTIDE\LUTETIUM LU-177
     Dosage: UNK
     Route: 065
     Dates: start: 20151217

REACTIONS (7)
  - Decreased appetite [Unknown]
  - Malignant neoplasm progression [Unknown]
  - Neuroendocrine tumour [Unknown]
  - Renal cyst [Unknown]
  - Diarrhoea [Unknown]
  - Blood chromogranin A increased [Unknown]
  - Underweight [Unknown]

NARRATIVE: CASE EVENT DATE: 20190424
